FAERS Safety Report 5096398-4 (Version None)
Quarter: 2006Q3

REPORT INFORMATION
  Report Type: 
  Country: None (occurrence: None)
  Receive Date: 20060830
  Receipt Date: 20060809
  Transmission Date: 20061208
  Serious: Yes (Life-Threatening, Hospitalization)
  Sender: FDA-Public Use
  Company Number: 2006ADE/DICLO-018

PATIENT
  Age: 70 Year
  Sex: Male

DRUGS (6)
  1. DICLOFENAC [Suspect]
     Indication: DIABETES MELLITUS
     Dosage: 50  MG
  2. METFORMIN HCL [Suspect]
     Indication: BACK PAIN
     Dosage: 2550MG
  3. ISOSORBIDE MONONITRATE [Concomitant]
  4. QUINAPRIL [Concomitant]
  5. DICLOFENAC [Concomitant]
  6. FUROSEMIDE [Suspect]
     Indication: CARDIAC FAILURE CONGESTIVE

REACTIONS (9)
  - ABDOMINAL DISCOMFORT [None]
  - BILIRUBIN EXCRETION DISORDER [None]
  - DEHYDRATION [None]
  - DISORIENTATION [None]
  - LACTIC ACIDOSIS [None]
  - MYALGIA [None]
  - RENAL FAILURE [None]
  - RESPIRATORY DISTRESS [None]
  - SOMNOLENCE [None]
